FAERS Safety Report 10688264 (Version 2)
Quarter: 2015Q1

REPORT INFORMATION
  Report Type: Spontaneous
  Country: US (occurrence: None)
  Receive Date: 20141231
  Receipt Date: 20150316
  Transmission Date: 20150720
  Serious: Yes (Other)
  Sender: FDA-Public Use
  Company Number: 2014-21067

PATIENT
  Age: 73 Year
  Sex: Male
  Weight: 112.5 kg

DRUGS (1)
  1. EYLEA [Suspect]
     Active Substance: AFLIBERCEPT
     Indication: DIABETIC RETINAL OEDEMA
     Dosage: OS
     Route: 031
     Dates: start: 20141117, end: 20150302

REACTIONS (5)
  - Hypoaesthesia [None]
  - Arterial stenosis [None]
  - Dysarthria [None]
  - Hypoaesthesia oral [None]
  - Cerebrovascular accident [None]

NARRATIVE: CASE EVENT DATE: 201412
